FAERS Safety Report 8486048-9 (Version None)
Quarter: 2012Q2

REPORT INFORMATION
  Report Type: 
  Country: None (occurrence: None)
  Receive Date: 20120626
  Receipt Date: 20120614
  Transmission Date: 20120825
  Serious: Yes (Other)
  Sender: FDA-Public Use
  Company Number: AUR-APL-2012-02715

PATIENT
  Age: 69 Year
  Sex: Female

DRUGS (1)
  1. LEVETIRACETAM [Suspect]
     Indication: PRODUCT USED FOR UNKNOWN INDICATION
     Dosage: 1000 MG (500 MG, 2 IN 1 D)

REACTIONS (10)
  - KLEBSIELLA TEST POSITIVE [None]
  - MUCOSAL ULCERATION [None]
  - SIMPLEX VIRUS TEST POSITIVE [None]
  - STOMATITIS [None]
  - RENAL FAILURE [None]
  - HAEMODIALYSIS [None]
  - CHRONIC LYMPHOCYTIC LEUKAEMIA [None]
  - TUBULOINTERSTITIAL NEPHRITIS [None]
  - HYPOGAMMAGLOBULINAEMIA [None]
  - URINARY TRACT INFECTION BACTERIAL [None]
